FAERS Safety Report 8581999-9 (Version None)
Quarter: 2012Q3

REPORT INFORMATION
  Report Type: 
  Country: None (occurrence: None)
  Receive Date: 20120809
  Receipt Date: 20120802
  Transmission Date: 20120928
  Serious: Yes (Hospitalization)
  Sender: FDA-Public Use
  Company Number: US-B.I. PHARMACEUTICALS,INC./RIDGEFIELD-2012-BP-17435BP

PATIENT
  Age: 8 Decade
  Sex: Female

DRUGS (2)
  1. CHEMOTHERAPY [Concomitant]
     Indication: MULTIPLE MYELOMA
  2. PRADAXA [Suspect]
     Indication: ATRIAL FIBRILLATION

REACTIONS (3)
  - SEPSIS [None]
  - PNEUMONIA [None]
  - PLATELET COUNT DECREASED [None]
